FAERS Safety Report 4467719-8 (Version None)
Quarter: 2004Q4

REPORT INFORMATION
  Report Type: 
  Country: None (occurrence: None)
  Receive Date: 20041004
  Receipt Date: 20041004
  Transmission Date: 20050328
  Serious: Yes (Congenital Anomaly)
  Sender: FDA-Public Use
  Company Number: None

PATIENT
  Sex: Male
  Weight: 79.3795 kg

DRUGS (2)
  1. VIOXX [Suspect]
     Indication: ARTHRITIS
     Dosage: 1 TABLET PER DAY ORAL
     Route: 048
     Dates: start: 20031210, end: 20041001
  2. BEXTRA [Suspect]
     Indication: ARTHRITIS
     Dosage: 1 TABLET PER DAY ORAL
     Route: 048
     Dates: start: 20031112, end: 20040316

REACTIONS (4)
  - ARTHROPATHY [None]
  - CONDITION AGGRAVATED [None]
  - DRUG INEFFECTIVE [None]
  - PAIN [None]
